FAERS Safety Report 7331582-8 (Version None)
Quarter: 2011Q1

REPORT INFORMATION
  Report Type: 
  Country: None (occurrence: None)
  Receive Date: 20110304
  Receipt Date: 20101129
  Transmission Date: 20110831
  Serious: No
  Sender: FDA-Public Use
  Company Number: A0896723A

PATIENT
  Age: 48 Year
  Sex: Female

DRUGS (5)
  1. MULTI-VITAMIN [Concomitant]
  2. FLOVENT [Suspect]
     Dosage: 1PUFF PER DAY
     Route: 055
     Dates: start: 20101125
  3. LAMICTAL [Suspect]
     Indication: BIPOLAR DISORDER
     Dosage: 25MG PER DAY
     Route: 048
     Dates: start: 20101101
  4. CLIMARA [Concomitant]
  5. FISH OIL [Concomitant]

REACTIONS (7)
  - DRUG INEFFECTIVE [None]
  - OROPHARYNGEAL PAIN [None]
  - LYMPHADENOPATHY [None]
  - DYSPHONIA [None]
  - DYSPNOEA [None]
  - STOMATITIS [None]
  - ORAL PAIN [None]
